FAERS Safety Report 24908760 (Version 1)
Quarter: 2025Q1

REPORT INFORMATION
  Report Type: Spontaneous
  Country: US (occurrence: US)
  Receive Date: 20250131
  Receipt Date: 20250131
  Transmission Date: 20250409
  Serious: No
  Sender: KARYOPHARM THERAPEUTICS
  Company Number: US-KARYOPHARM-2025KPT000103

PATIENT

DRUGS (28)
  1. XPOVIO [Suspect]
     Active Substance: SELINEXOR
     Indication: Plasma cell myeloma
     Dosage: 60 MG, WEEKLY
     Route: 048
  2. DEXAMETHASONE [Concomitant]
     Active Substance: DEXAMETHASONE
  3. PROCHLORPERAZINE MALEATE [Concomitant]
     Active Substance: PROCHLORPERAZINE MALEATE
  4. METHYLPHENIDATE HYDROCHLORIDE [Concomitant]
     Active Substance: METHYLPHENIDATE HYDROCHLORIDE
  5. ATIVAN [Concomitant]
     Active Substance: LORAZEPAM
  6. DILTIAZEM [Concomitant]
     Active Substance: DILTIAZEM
  7. ACYCLOVIR [Concomitant]
     Active Substance: ACYCLOVIR
  8. TRINTELLIX [Concomitant]
     Active Substance: VORTIOXETINE HYDROBROMIDE
  9. ZOLPIDEM TARTRATE [Concomitant]
     Active Substance: ZOLPIDEM TARTRATE
  10. TESTOSTERONE CYPIONATE [Concomitant]
     Active Substance: TESTOSTERONE CYPIONATE
  11. TRAZODONE HCL [Concomitant]
     Active Substance: TRAZODONE HYDROCHLORIDE
  12. BUPRENORPHINE HYDROCHLORIDE [Concomitant]
     Active Substance: BUPRENORPHINE HYDROCHLORIDE
  13. OMEPRAZOLE [Concomitant]
     Active Substance: OMEPRAZOLE
  14. NEBIVOLOL [Concomitant]
     Active Substance: NEBIVOLOL
  15. MODAFINIL [Concomitant]
     Active Substance: MODAFINIL
  16. TADALAFIL [Concomitant]
     Active Substance: TADALAFIL
  17. AMIODARONE HYDROCHLORIDE [Concomitant]
     Active Substance: AMIODARONE HYDROCHLORIDE
  18. LATANOPROST [Concomitant]
     Active Substance: LATANOPROST
  19. LEVOBUNOLOL HYDROCHLORIDE [Concomitant]
     Active Substance: LEVOBUNOLOL HYDROCHLORIDE
  20. SIMBRINZA [Concomitant]
     Active Substance: BRIMONIDINE TARTRATE\BRINZOLAMIDE
  21. TAMSULOSIN [Concomitant]
     Active Substance: TAMSULOSIN
  22. DAPSONE [Concomitant]
     Active Substance: DAPSONE
  23. DESVENLAFAXINE [Concomitant]
     Active Substance: DESVENLAFAXINE
  24. FINASTERIDE [Concomitant]
     Active Substance: FINASTERIDE
  25. FLUCONAZOLE [Concomitant]
     Active Substance: FLUCONAZOLE
  26. FUROSEMIDE [Concomitant]
     Active Substance: FUROSEMIDE
  27. GEMTESA [Concomitant]
     Active Substance: VIBEGRON
  28. LEVOTHYROXINE [Concomitant]
     Active Substance: LEVOTHYROXINE

REACTIONS (1)
  - Wound [Unknown]
